FAERS Safety Report 25956260 (Version 2)
Quarter: 2025Q4

REPORT INFORMATION
  Report Type: Spontaneous
  Country: EU (occurrence: EU)
  Receive Date: 20251024
  Receipt Date: 20251118
  Transmission Date: 20260118
  Serious: Yes (Hospitalization)
  Sender: TEVA
  Company Number: EU-TEVA-VS-3384989

PATIENT
  Age: 61 Year
  Sex: Male

DRUGS (1)
  1. SORAFENIB [Suspect]
     Active Substance: SORAFENIB
     Indication: Hepatocellular carcinoma
     Route: 065
     Dates: start: 202107, end: 202108

REACTIONS (5)
  - Drug intolerance [Unknown]
  - General physical health deterioration [Unknown]
  - Abdominal pain upper [Unknown]
  - Vomiting [Not Recovered/Not Resolved]
  - Hypophagia [Unknown]

NARRATIVE: CASE EVENT DATE: 20210101
